FAERS Safety Report 11158840 (Version 2)
Quarter: 2015Q3

REPORT INFORMATION
  Report Type: Spontaneous
  Country: US (occurrence: US)
  Receive Date: 20150603
  Receipt Date: 20150706
  Transmission Date: 20151125
  Serious: Yes (Other)
  Sender: FDA-Public Use
  Company Number: US-PFIZER INC-2015183193

PATIENT
  Age: 51 Year
  Sex: Female
  Weight: 39 kg

DRUGS (12)
  1. SOLU-CORTEF [Suspect]
     Active Substance: HYDROCORTISONE SODIUM SUCCINATE
     Dosage: 100 MG, UNK
  2. FLUDROCORTISONE [Concomitant]
     Active Substance: FLUDROCORTISONE
     Dosage: 0.1 MG, 1X/DAY, IN THE MORNING
     Route: 048
  3. A-HYDROCORT [Concomitant]
     Active Substance: HYDROCORTISONE SODIUM SUCCINATE
     Dosage: 100 MG, DAILY
     Route: 048
  4. A-HYDROCORT [Concomitant]
     Active Substance: HYDROCORTISONE SODIUM SUCCINATE
     Dosage: 50MG DAILY (THREE TABLETS IN THE MORNING, TWO AT 1400)
     Route: 048
  5. DEXAMETHASONE. [Concomitant]
     Active Substance: DEXAMETHASONE
     Dosage: 1.5MG ONCE DAILY AT BEDTIME
     Route: 048
  6. PROLIA [Concomitant]
     Active Substance: DENOSUMAB
     Indication: OSTEOPOROSIS
     Dosage: EVERY SIX MONTHS
  7. FENTANYL. [Concomitant]
     Active Substance: FENTANYL
     Dosage: UNK
  8. SOLU-CORTEF [Suspect]
     Active Substance: HYDROCORTISONE SODIUM SUCCINATE
     Indication: ADRENOCORTICAL INSUFFICIENCY ACUTE
     Dosage: 100 MG, AS NEEDED
     Route: 058
  9. DEXAMETHASONE. [Concomitant]
     Active Substance: DEXAMETHASONE
     Dosage: 0.75 MG, 1X/DAY, AT BEDTIME
     Route: 048
  10. SOLU-CORTEF [Suspect]
     Active Substance: HYDROCORTISONE SODIUM SUCCINATE
     Dosage: 100 MG, AS NEEDED
  11. FLUDROCORTISONE [Concomitant]
     Active Substance: FLUDROCORTISONE
     Dosage: 0.2 MG, 1X/DAY, IN THE MORNING
     Route: 048
  12. VITAMIN B12 AMINO [Concomitant]
     Dosage: EVERY 30 DAYS

REACTIONS (2)
  - Adrenocortical insufficiency acute [Not Recovered/Not Resolved]
  - Cerebrovascular accident [Unknown]

NARRATIVE: CASE EVENT DATE: 2015
